FAERS Safety Report 9454586 (Version 1)
Quarter: 2013Q3

REPORT INFORMATION
  Report Type: Report from Study
  Country: CL (occurrence: CL)
  Receive Date: 20130812
  Receipt Date: 20130812
  Transmission Date: 20140515
  Serious: Yes (Other)
  Sender: FDA-Public Use
  Company Number: CL-ROCHE-1260455

PATIENT
  Age: 52 Year
  Sex: Male
  Weight: 52 kg

DRUGS (1)
  1. XELODA [Suspect]
     Indication: RECTAL CANCER
     Dosage: 14-DAY-CYCLE, LAST DOSE PRIOR TO SAE WAS ON 07/JUN/2013
     Route: 048
     Dates: start: 20130318, end: 20130805

REACTIONS (2)
  - Disease progression [Unknown]
  - Pelvic pain [Not Recovered/Not Resolved]
